FAERS Safety Report 13928016 (Version 1)
Quarter: 2017Q3

REPORT INFORMATION
  Report Type: Spontaneous
  Country: US (occurrence: None)
  Receive Date: 20170831
  Receipt Date: 20170831
  Transmission Date: 20171127
  Serious: No
  Sender: FDA-Public Use
  Company Number: None

PATIENT
  Sex: Female

DRUGS (2)
  1. TEMOZOLOMIDE 100MG SANDOZ [Suspect]
     Active Substance: TEMOZOLOMIDE
     Indication: BRAIN NEOPLASM MALIGNANT
     Dosage: FREQUENCY - DIALY FOR 5 DAYS EVERY 4 WEEKS
     Route: 048
     Dates: start: 20170703
  2. TEMOZOLOMIDE 250MG SANDOZ [Suspect]
     Active Substance: TEMOZOLOMIDE
     Indication: BRAIN NEOPLASM MALIGNANT
     Dosage: FREQUENCY - DAILY FOR 5 DAYS EVERY 4 WEEKS
     Route: 048
     Dates: start: 20170703

REACTIONS (1)
  - Hallucination [None]
